FAERS Safety Report 17020537 (Version 1)
Quarter: 2019Q4

REPORT INFORMATION
  Report Type: Spontaneous
  Country: FR (occurrence: FR)
  Receive Date: 20191112
  Receipt Date: 20191112
  Transmission Date: 20200122
  Serious: Yes (Hospitalization)
  Sender: FDA-Public Use
  Company Number: FR-GLAXOSMITHKLINE-FR2019202290

PATIENT
  Age: 20 Year
  Sex: Female
  Weight: 65 kg

DRUGS (10)
  1. SCOPODERM TTS [Suspect]
     Active Substance: SCOPOLAMINE
     Indication: PRODUCT USED FOR UNKNOWN INDICATION
     Dosage: 1 DF, 1 MG/72 HOURS
     Route: 003
     Dates: start: 20190920, end: 20191001
  2. METHYLPREDNISOLONE HEMISUCCINATE [Suspect]
     Active Substance: METHYLPREDNISOLONE HEMISUCCINATE
     Indication: MYCOPLASMA INFECTION
     Dosage: 40 MG, QD
     Route: 042
     Dates: start: 20190928, end: 20190929
  3. PIPERACILLIN AND TAZOBACTAM [Suspect]
     Active Substance: PIPERACILLIN SODIUM\TAZOBACTAM SODIUM
     Indication: MYCOPLASMA INFECTION
     Dosage: 3 DF, QD
     Route: 042
     Dates: start: 20190928, end: 20190929
  4. POLARAMINE [Concomitant]
     Active Substance: DEXCHLORPHENIRAMINE MALEATE
     Indication: PRODUCT USED FOR UNKNOWN INDICATION
     Dosage: UNK
     Route: 065
  5. IOMERON [Suspect]
     Active Substance: IOMEPROL
     Indication: COMPUTERISED TOMOGRAM
     Dosage: 1 DF, SINGLE
     Route: 042
     Dates: start: 20190929, end: 20190929
  6. XYLOCAINE + ADRENALINE [Concomitant]
     Active Substance: EPINEPHRINE BITARTRATE\LIDOCAINE HYDROCHLORIDE
     Indication: PRODUCT USED FOR UNKNOWN INDICATION
     Dosage: UNK
     Route: 065
  7. INNOHEP [Suspect]
     Active Substance: TINZAPARIN SODIUM
     Indication: PULMONARY EMBOLISM
     Dosage: 10000 IU, QD
     Route: 058
     Dates: start: 20190929, end: 20190929
  8. ROVAMYCINE [Suspect]
     Active Substance: SPIRAMYCIN
     Indication: MYCOPLASMA INFECTION
     Dosage: 6000000 IU, QD
     Route: 048
     Dates: start: 20190927, end: 20190930
  9. ACICLOVIR MYLAN [Suspect]
     Active Substance: ACYCLOVIR
     Indication: INFECTION
     Dosage: 750 MG, QD
     Route: 042
     Dates: start: 20190920, end: 20191001
  10. CEFTRIAXONE NA MYLAN [Suspect]
     Active Substance: CEFTRIAXONE SODIUM
     Indication: INFECTION
     Dosage: UNK
     Route: 042
     Dates: start: 20190920, end: 20190929

REACTIONS (1)
  - Rash maculo-papular [Recovered/Resolved]

NARRATIVE: CASE EVENT DATE: 20190930
